FAERS Safety Report 17456699 (Version 2)
Quarter: 2020Q1

REPORT INFORMATION
  Report Type: Spontaneous
  Country: US (occurrence: US)
  Receive Date: 20200225
  Receipt Date: 20200330
  Transmission Date: 20200409
  Serious: No
  Sender: FDA-Public Use
  Company Number: US-ASTRAZENECA-2020SE17031

PATIENT
  Sex: Male

DRUGS (1)
  1. BYDUREON BCISE [Suspect]
     Active Substance: EXENATIDE
     Route: 058
     Dates: start: 202001

REACTIONS (4)
  - Drug delivery system malfunction [Unknown]
  - Intentional device misuse [Unknown]
  - Product dose omission [Unknown]
  - Injection site haemorrhage [Unknown]
